FAERS Safety Report 11647011 (Version 3)
Quarter: 2016Q1

REPORT INFORMATION
  Report Type: Spontaneous
  Country: JP (occurrence: JP)
  Receive Date: 20151021
  Receipt Date: 20160104
  Transmission Date: 20160525
  Serious: Yes (Hospitalization)
  Sender: FDA-Public Use
  Company Number: JP-009507513-1510JPN008188

PATIENT
  Age: 57 Year
  Sex: Male

DRUGS (18)
  1. EMEND [Suspect]
     Active Substance: APREPITANT
     Dosage: 80 MG, QD
     Route: 048
     Dates: start: 20151007, end: 20151007
  2. TAGAMET [Concomitant]
     Active Substance: CIMETIDINE
  3. ALOXI [Concomitant]
     Active Substance: PALONOSETRON HYDROCHLORIDE
  4. AVASTIN [Suspect]
     Active Substance: BEVACIZUMAB
     Indication: PRODUCT USED FOR UNKNOWN INDICATION
     Dosage: 260 MG, QD
     Route: 042
     Dates: start: 20141222
  5. HANGE-SHASHIN-TO [Concomitant]
     Active Substance: HERBALS
  6. GOSHA-JINKI-GAN [Concomitant]
     Active Substance: HERBALS
  7. GRANISETRON [Concomitant]
     Active Substance: GRANISETRON
     Dosage: UNK
     Dates: start: 20151006
  8. IRINOTECAN HYDROCHLORIDE. [Suspect]
     Active Substance: IRINOTECAN HYDROCHLORIDE
     Dosage: 190 MG, QD
     Route: 042
     Dates: start: 20150817
  9. JUZEN-TAIHO-TO [Concomitant]
     Active Substance: UNSPECIFIED INGREDIENT
  10. NAUZELIN [Suspect]
     Active Substance: DOMPERIDONE
     Indication: PROPHYLAXIS OF NAUSEA AND VOMITING
     Dosage: 60 MG, QD
     Route: 054
     Dates: start: 20151006
  11. LEUCON (ADENINE) [Concomitant]
  12. CEPHARANTHINE [Concomitant]
     Active Substance: CEPHARANTHINE
  13. EMEND [Suspect]
     Active Substance: APREPITANT
     Dosage: UNK
  14. LEVOLEUCOVORIN CALCIUM [Suspect]
     Active Substance: LEVOLEUCOVORIN CALCIUM
     Dosage: 310 MG, QD
     Route: 042
     Dates: start: 20141222
  15. EMEND [Suspect]
     Active Substance: APREPITANT
     Indication: PROPHYLAXIS OF NAUSEA AND VOMITING
     Dosage: 125 MG, QD
     Route: 048
     Dates: start: 20151006, end: 20151006
  16. FLUOROURACIL. [Suspect]
     Active Substance: FLUOROURACIL
     Dosage: 3750MG, QD
     Route: 042
     Dates: start: 20141222
  17. BIO-THREE [Concomitant]
     Active Substance: HERBALS
  18. DEXART [Concomitant]
     Active Substance: DEXAMETHASONE SODIUM PHOSPHATE

REACTIONS (2)
  - Drug dose omission [Unknown]
  - Drug eruption [Recovered/Resolved]

NARRATIVE: CASE EVENT DATE: 20151007
